FAERS Safety Report 6315007-7 (Version None)
Quarter: 2009Q3

REPORT INFORMATION
  Report Type: 
  Country: None (occurrence: None)
  Receive Date: 20090819
  Receipt Date: 20090807
  Transmission Date: 20100115
  Serious: Yes (Other)
  Sender: FDA-Public Use
  Company Number: US-ELI_LILLY_AND_COMPANY-US200906002143

PATIENT
  Sex: Female

DRUGS (8)
  1. CYMBALTA [Suspect]
     Indication: DEPRESSION
     Dosage: 60 MG, 2/D
     Dates: start: 20060101, end: 20090601
  2. CYMBALTA [Suspect]
     Dosage: 60 MG, DAILY (1/D)
  3. NEURONTIN [Concomitant]
     Indication: MIGRAINE
     Dosage: UNK, AS NEEDED
  4. IMITREX [Concomitant]
     Indication: MIGRAINE
     Dosage: UNK, AS NEEDED
  5. CORTICOSTEROIDS [Concomitant]
     Route: 050
  6. NEXIUM [Concomitant]
     Dosage: UNK, AS NEEDED
  7. DARVOCET [Concomitant]
     Dosage: UNK, AS NEEDED
  8. CLONAZEPAM [Concomitant]
     Dosage: UNK, AS NEEDED

REACTIONS (9)
  - ARTHRITIS [None]
  - DRUG WITHDRAWAL SYNDROME [None]
  - HEADACHE [None]
  - KNEE ARTHROPLASTY [None]
  - MAMMOPLASTY [None]
  - MUSCULOSKELETAL STIFFNESS [None]
  - NAUSEA [None]
  - SPINAL COLUMN STENOSIS [None]
  - VOMITING [None]
